FAERS Safety Report 14835249 (Version 1)
Quarter: 2018Q2

REPORT INFORMATION
  Report Type: Report from Study
  Country: KR (occurrence: KR)
  Receive Date: 20180502
  Receipt Date: 20180502
  Transmission Date: 20180711
  Serious: Yes (Other)
  Sender: FDA-Public Use
  Company Number: KR-BIOGEN-2018BI00568016

PATIENT
  Sex: Male
  Weight: 94 kg

DRUGS (1)
  1. AVONEX [Suspect]
     Active Substance: INTERFERON BETA-1A
     Indication: MULTIPLE SCLEROSIS
     Route: 030
     Dates: start: 20180226

REACTIONS (1)
  - Diplegia [Unknown]

NARRATIVE: CASE EVENT DATE: 201804
